FAERS Safety Report 9800245 (Version 1)
Quarter: 2014Q1

REPORT INFORMATION
  Report Type: Spontaneous
  Country: US (occurrence: US)
  Receive Date: 20140106
  Receipt Date: 20140106
  Transmission Date: 20141002
  Serious: Yes (Death, Other)
  Sender: FDA-Public Use
  Company Number: US-UCBSA-107934

PATIENT
  Age: 42 Year
  Sex: Female

DRUGS (12)
  1. ALPRAZOLAM [Suspect]
  2. FENTANYL [Suspect]
     Route: 062
  3. CITALOPRAM [Suspect]
  4. DOXEPIN [Suspect]
  5. MORPHINE [Suspect]
  6. HYDROMORPHONE [Suspect]
  7. ANDROGENS [Suspect]
  8. ACETAMINOPHEN/OXYCODONE [Suspect]
  9. CLONAZEPAM [Suspect]
  10. TAPENTADOL [Suspect]
     Dosage: EXTENDED RELEASE
  11. LEVOTHYROXINE [Suspect]
  12. MELOXICAM [Suspect]

REACTIONS (2)
  - Cardio-respiratory arrest [Fatal]
  - Completed suicide [Fatal]
